FAERS Safety Report 10185272 (Version 1)
Quarter: 2014Q2

REPORT INFORMATION
  Report Type: Report from Study
  Country: US (occurrence: US)
  Receive Date: 20140521
  Receipt Date: 20140521
  Transmission Date: 20141212
  Serious: Yes (Hospitalization)
  Sender: FDA-Public Use
  Company Number: US-ROCHE-1399998

PATIENT
  Sex: Male
  Weight: 93 kg

DRUGS (11)
  1. XOLAIR [Suspect]
     Indication: ASTHMA
     Route: 058
  2. TORADOL [Suspect]
     Indication: PRODUCT USED FOR UNKNOWN INDICATION
     Route: 065
  3. KLONOPIN [Suspect]
     Indication: PRODUCT USED FOR UNKNOWN INDICATION
     Route: 048
  4. ADVAIR DISKUS [Concomitant]
     Dosage: 500/50 1 INHALATION PUFF
     Route: 065
  5. EPIPEN [Concomitant]
     Dosage: 1:1000 SOLUTIONS FOR INJECTION USE AS DIRECTED
     Route: 065
  6. ABILIFY [Concomitant]
     Route: 048
  7. ALBUTEROL [Concomitant]
     Dosage: ACTUATION ORAL INHALER 1TO2 PUFF BY MOUTH Q4TO6HR
     Route: 065
  8. VISTARIL [Concomitant]
     Dosage: AT BEDTIME
     Route: 065
  9. XANAX [Concomitant]
     Route: 048
  10. ZYRTEC [Concomitant]
     Route: 065
  11. ADDERALL [Concomitant]

REACTIONS (10)
  - Anaphylactic reaction [Unknown]
  - Injection site pain [Unknown]
  - Dyspnoea paroxysmal nocturnal [Unknown]
  - Eye pruritus [Unknown]
  - Arthralgia [Unknown]
  - Asthma [Unknown]
  - Myalgia [Unknown]
  - Influenza like illness [Unknown]
  - Ocular hyperaemia [Unknown]
  - Drug hypersensitivity [Unknown]
